FAERS Safety Report 5025896-4 (Version None)
Quarter: 2006Q2

REPORT INFORMATION
  Report Type: 
  Country: None (occurrence: None)
  Receive Date: 20060614
  Receipt Date: 20060605
  Transmission Date: 20061013
  Serious: Yes (Hospitalization, Other)
  Sender: FDA-Public Use
  Company Number: US-JNJFOC-20060601131

PATIENT
  Age: 68 Year
  Sex: Male

DRUGS (1)
  1. REMICADE [Suspect]
     Indication: RHEUMATOID ARTHRITIS
     Dosage: ON FOR  GREATER THAN 4 YEARS
     Route: 042

REACTIONS (3)
  - AORTIC ANEURYSM [None]
  - CORONARY ARTERY DISEASE [None]
  - VASCULITIS [None]
